FAERS Safety Report 9154284 (Version 2)
Quarter: 2013Q3

REPORT INFORMATION
  Report Type: Spontaneous
  Country: FR (occurrence: FR)
  Receive Date: 20130311
  Receipt Date: 20130816
  Transmission Date: 20140515
  Serious: Yes (Hospitalization, Disabling)
  Sender: FDA-Public Use
  Company Number: FR-ASTRAZENECA-2013SE15070

PATIENT
  Age: 1090 Month
  Sex: Female
  Weight: 53 kg

DRUGS (9)
  1. CRESTOR [Suspect]
     Indication: CARDIOVASCULAR EVENT PROPHYLAXIS
     Route: 048
     Dates: start: 2008, end: 20130301
  2. SELECTOL [Suspect]
     Indication: CARDIAC FAILURE
     Route: 048
     Dates: start: 2008, end: 20130301
  3. PLAVIX [Concomitant]
     Indication: CARDIAC FAILURE
     Route: 048
     Dates: start: 2008
  4. ATACAND [Concomitant]
     Indication: CARDIAC FAILURE
     Route: 048
     Dates: start: 2008
  5. TRINITRINE [Concomitant]
     Indication: CARDIAC FAILURE
     Route: 062
     Dates: start: 2008
  6. KENZEN [Concomitant]
     Indication: CARDIAC FAILURE
     Route: 048
     Dates: start: 2008
  7. LASILIX [Concomitant]
     Indication: CARDIAC FAILURE
     Route: 048
     Dates: start: 2012
  8. LERCAN [Concomitant]
     Indication: CARDIAC FAILURE
     Route: 048
     Dates: start: 2008
  9. KARDEGIC [Concomitant]

REACTIONS (2)
  - Interstitial lung disease [Unknown]
  - Dyspnoea [Unknown]
